FAERS Safety Report 11833777 (Version 2)
Quarter: 2015Q4

REPORT INFORMATION
  Report Type: Report from Study
  Country: BR (occurrence: BR)
  Receive Date: 20151214
  Receipt Date: 20151218
  Transmission Date: 20160305
  Serious: Yes (Hospitalization, Other)
  Sender: FDA-Public Use
  Company Number: PHHY2015BR163243

PATIENT
  Age: 77 Year
  Sex: Female
  Weight: 76 kg

DRUGS (1)
  1. DIOVAN HCT [Suspect]
     Active Substance: HYDROCHLOROTHIAZIDE\VALSARTAN
     Indication: HYPERTENSION
     Dosage: 1 DF, QD (28 TABLETS)
     Route: 048
     Dates: end: 20151120

REACTIONS (5)
  - Fall [Recovering/Resolving]
  - Lower limb fracture [Recovering/Resolving]
  - Blood pressure decreased [Recovering/Resolving]
  - Dizziness [Recovered/Resolved]
  - Upper limb fracture [Recovering/Resolving]

NARRATIVE: CASE EVENT DATE: 20151119
